FAERS Safety Report 6198266-3 (Version None)
Quarter: 2009Q2

REPORT INFORMATION
  Report Type: 
  Country: None (occurrence: None)
  Receive Date: 20090521
  Receipt Date: 20090511
  Transmission Date: 20091009
  Serious: Yes (Other)
  Sender: FDA-Public Use
  Company Number: BR-JNJFOC-20090503004

PATIENT
  Age: 12 Month
  Sex: Male

DRUGS (5)
  1. TYLENOL (CAPLET) [Suspect]
     Route: 048
  2. TYLENOL (CAPLET) [Suspect]
     Indication: FEBRILE INFECTION
     Route: 048
  3. TYLENOL (CAPLET) [Suspect]
     Route: 048
  4. TYLENOL (CAPLET) [Suspect]
     Indication: PYREXIA
     Route: 048
  5. CEFALEXIN [Concomitant]
     Indication: BRONCHOPNEUMONIA

REACTIONS (3)
  - CONVULSION [None]
  - DRUG INEFFECTIVE [None]
  - VOMITING [None]
